FAERS Safety Report 23292440 (Version 2)
Quarter: 2023Q4

REPORT INFORMATION
  Report Type: Report from Study
  Country: US (occurrence: US)
  Receive Date: 20231213
  Receipt Date: 20231228
  Transmission Date: 20240109
  Serious: Yes (Other)
  Sender: FDA-Public Use
  Company Number: US-BAYER-2023A177460

PATIENT
  Sex: Male

DRUGS (2)
  1. ASPIRIN [Interacting]
     Active Substance: ASPIRIN
     Indication: Antiplatelet therapy
     Dosage: UNK
  2. AGGRENOX [Interacting]
     Active Substance: ASPIRIN\DIPYRIDAMOLE
     Indication: Antiplatelet therapy
     Dosage: UNK

REACTIONS (1)
  - Haemorrhage [Unknown]
